FAERS Safety Report 7523537-5 (Version None)
Quarter: 2011Q2

REPORT INFORMATION
  Report Type: 
  Country: None (occurrence: None)
  Receive Date: 20110601
  Receipt Date: 20110601
  Transmission Date: 20111010
  Serious: Yes (Other)
  Sender: FDA-Public Use
  Company Number: None

PATIENT
  Age: 64 Year
  Sex: Female
  Weight: 56.6996 kg

DRUGS (1)
  1. METOPROLOL SUCCINATE [Suspect]
     Indication: HYPERTENSION
     Dosage: 1 AT NIGHT MOUTH
     Route: 048
     Dates: start: 20110502, end: 20110505

REACTIONS (4)
  - INSOMNIA [None]
  - ANXIETY [None]
  - STRESS [None]
  - BLOOD PRESSURE INCREASED [None]
